FAERS Safety Report 15650828 (Version 4)
Quarter: 2018Q4

REPORT INFORMATION
  Report Type: Spontaneous
  Country: US (occurrence: US)
  Receive Date: 20181123
  Receipt Date: 20181226
  Transmission Date: 20190205
  Serious: Yes (Hospitalization)
  Sender: FDA-Public Use
  Company Number: US-JNJFOC-20181117659

PATIENT
  Age: 19 Year
  Sex: Female
  Weight: 69 kg

DRUGS (1)
  1. ACETAMINOPHEN (APAP)/DIPHENHYDRAMINE HCL [Suspect]
     Active Substance: ACETAMINOPHEN\DIPHENHYDRAMINE HYDROCHLORIDE
     Indication: PRODUCT USED FOR UNKNOWN INDICATION
     Dosage: PURCHASED A BOTTLE OF ACETAMINOPHEN/DIPHENHYDRAMINE TABLETS PROMPTLY INGESTED 86.5 G APAP/4.3 ONCE
     Route: 048

REACTIONS (3)
  - Hepatotoxicity [Recovering/Resolving]
  - Overdose [Unknown]
  - Haemolytic anaemia [Recovered/Resolved]
